FAERS Safety Report 4306797-3 (Version None)
Quarter: 2004Q1

REPORT INFORMATION
  Report Type: 
  Country: None (occurrence: None)
  Receive Date: 20040225
  Receipt Date: 20040209
  Transmission Date: 20041129
  Serious: Yes (Hospitalization)
  Sender: FDA-Public Use
  Company Number: USA031255202

PATIENT
  Age: 54 Year
  Sex: Female

DRUGS (1)
  1. FORTEO [Suspect]
     Dates: start: 20031205

REACTIONS (2)
  - INJECTION SITE ERYTHEMA [None]
  - JOINT DISLOCATION [None]
